FAERS Safety Report 10765724 (Version 1)
Quarter: 2015Q1

REPORT INFORMATION
  Report Type: Spontaneous
  Country: BE (occurrence: None)
  Receive Date: 20150203
  Receipt Date: 20150203
  Transmission Date: 20150721
  Serious: No
  Sender: FDA-Public Use
  Company Number: 7318051

PATIENT
  Age: 30 Year
  Sex: Male

DRUGS (2)
  1. HYDROXOCOBALAMIN [Suspect]
     Active Substance: HYDROXOCOBALAMIN
     Indication: METABOLIC ACIDOSIS
  2. SODUM THIOSULFATE [Concomitant]
     Active Substance: SODIUM THIOSULFATE
     Indication: METABOLIC ACIDOSIS

REACTIONS (2)
  - Lactic acidosis [None]
  - Disease recurrence [None]
